FAERS Safety Report 10022905 (Version 2)
Quarter: 2014Q2

REPORT INFORMATION
  Report Type: Report from Study
  Country: US (occurrence: US)
  Receive Date: 20140319
  Receipt Date: 20140408
  Transmission Date: 20141212
  Serious: Yes (Other)
  Sender: FDA-Public Use
  Company Number: US-BAXTER-2014BAX013267

PATIENT
  Sex: Female
  Weight: 86.18 kg

DRUGS (3)
  1. ARALAST NP [Suspect]
     Indication: ALPHA-1 ANTI-TRYPSIN DEFICIENCY
     Route: 042
     Dates: start: 201310
  2. PREDNISONE [Concomitant]
     Indication: DYSPNOEA
     Route: 048
     Dates: start: 2013
  3. TRAMADOL [Concomitant]
     Indication: SCIATIC NERVE NEUROPATHY
     Route: 065

REACTIONS (3)
  - Thoracic vertebral fracture [Not Recovered/Not Resolved]
  - Dyspnoea [Not Recovered/Not Resolved]
  - Sciatica [Not Recovered/Not Resolved]
